FAERS Safety Report 5413364-7 (Version None)
Quarter: 2007Q3

REPORT INFORMATION
  Report Type: 
  Country: None (occurrence: None)
  Receive Date: 20070814
  Receipt Date: 20070807
  Transmission Date: 20080115
  Serious: Yes (Life-Threatening, Hospitalization, Other)
  Sender: FDA-Public Use
  Company Number: BR-JNJFOC-20070800515

PATIENT
  Age: 28 Year
  Sex: Male

DRUGS (1)
  1. HALDOL [Suspect]
     Indication: DRUG USE FOR UNKNOWN INDICATION
     Route: 048

REACTIONS (7)
  - ACUTE RESPIRATORY DISTRESS SYNDROME [None]
  - BLOOD GLUCOSE DECREASED [None]
  - MUSCLE SPASMS [None]
  - RENAL FAILURE [None]
  - RHABDOMYOLYSIS [None]
  - TACHYCARDIA [None]
  - TREMOR [None]
